FAERS Safety Report 17252610 (Version 1)
Quarter: 2020Q1

REPORT INFORMATION
  Report Type: Spontaneous
  Country: GB (occurrence: GB)
  Receive Date: 20200109
  Receipt Date: 20200109
  Transmission Date: 20200409
  Serious: Yes (Other)
  Sender: FDA-Public Use
  Company Number: EU-ASTELLAS-2019US051905AA

PATIENT
  Sex: Male

DRUGS (4)
  1. CIPROFLOXACIN. [Suspect]
     Active Substance: CIPROFLOXACIN
     Indication: PRODUCT USED FOR UNKNOWN INDICATION
     Dosage: UNK UNK, UNKNOWN FREQ.
     Route: 065
  2. CLARITHROMYCIN. [Interacting]
     Active Substance: CLARITHROMYCIN
     Indication: PRODUCT USED FOR UNKNOWN INDICATION
     Dosage: UNK UNK, UNKNOWN FREQ.
     Route: 065
  3. TACROLIMUS. [Suspect]
     Active Substance: TACROLIMUS
     Indication: PRODUCT USED FOR UNKNOWN INDICATION
     Dosage: UNK UNK, UNKNOWN FREQ.
     Route: 065
  4. AMIKACIN. [Suspect]
     Active Substance: AMIKACIN
     Indication: PRODUCT USED FOR UNKNOWN INDICATION
     Dosage: UNK UNK, UNKNOWN FREQ.
     Route: 065

REACTIONS (13)
  - Nausea [Unknown]
  - Drug interaction [Unknown]
  - Renal impairment [Unknown]
  - Leukocyturia [Unknown]
  - Immunosuppressant drug level increased [Unknown]
  - Weight increased [Unknown]
  - Renal tubular disorder [Unknown]
  - Diarrhoea [Unknown]
  - Blood creatine increased [Unknown]
  - Proteinuria [Unknown]
  - Renal failure [Unknown]
  - Renal tubular necrosis [Unknown]
  - Acute kidney injury [Unknown]
